FAERS Safety Report 17580915 (Version 1)
Quarter: 2020Q1

REPORT INFORMATION
  Report Type: Spontaneous
  Country: US (occurrence: US)
  Receive Date: 20200320
  Receipt Date: 20200320
  Transmission Date: 20200409
  Serious: Yes (Hospitalization)
  Sender: FDA-Public Use
  Company Number: None

PATIENT
  Age: 49 Year
  Sex: Male
  Weight: 87.1 kg

DRUGS (2)
  1. TOPOTECAN [Suspect]
     Active Substance: TOPOTECAN HYDROCHLORIDE
     Dates: end: 20200209
  2. CARBOPLATIN. [Suspect]
     Active Substance: CARBOPLATIN
     Dates: end: 20200209

REACTIONS (7)
  - Joint swelling [None]
  - Pneumonia cryptococcal [None]
  - Arthritis bacterial [None]
  - Fluid overload [None]
  - Gout [None]
  - Arthralgia [None]
  - Haematoma [None]

NARRATIVE: CASE EVENT DATE: 20200316
